FAERS Safety Report 22822987 (Version 5)
Quarter: 2024Q1

REPORT INFORMATION
  Report Type: Report from Study
  Country: US (occurrence: US)
  Receive Date: 20230815
  Receipt Date: 20240120
  Transmission Date: 20240409
  Serious: No
  Sender: FDA-Public Use
  Company Number: US-002147023-NVSC2023US177473

PATIENT
  Sex: Male

DRUGS (1)
  1. KESIMPTA [Suspect]
     Active Substance: OFATUMUMAB
     Indication: Product used for unknown indication
     Dosage: UNK
     Route: 065

REACTIONS (10)
  - Influenza like illness [Unknown]
  - Chills [Unknown]
  - Peripheral swelling [Unknown]
  - Tendonitis [Unknown]
  - Arthralgia [Unknown]
  - Faeces discoloured [Unknown]
  - Blister [Unknown]
  - Vein disorder [Unknown]
  - Pain in extremity [Unknown]
  - Fatigue [Unknown]
